FAERS Safety Report 17902588 (Version 1)
Quarter: 2020Q2

REPORT INFORMATION
  Report Type: Spontaneous
  Country: US (occurrence: US)
  Receive Date: 20200617
  Receipt Date: 20200617
  Transmission Date: 20200714
  Serious: Yes (Other)
  Sender: FDA-Public Use
  Company Number: US-AMGEN-USASP2020095861

PATIENT
  Age: 64 Year
  Sex: Female
  Weight: 92.99 kg

DRUGS (3)
  1. METHOTREXATE. [Concomitant]
     Active Substance: METHOTREXATE
     Indication: RHEUMATOID ARTHRITIS
     Dosage: 20 MG, WEEKLY [EIGHT 2.5MG TABLETS BY MOUTH ONCE WEEKLY]
     Route: 048
     Dates: start: 2014
  2. SULFASALAZINE. [Concomitant]
     Active Substance: SULFASALAZINE
     Indication: RHEUMATOID ARTHRITIS
     Dosage: 1500 MG, 2X/DAY [THREE TABLETS BY MOUTH TWICE DAILY]
     Route: 048
     Dates: start: 2014
  3. ENBREL [Suspect]
     Active Substance: ETANERCEPT
     Indication: RHEUMATOID ARTHRITIS
     Dosage: UNK, WEEKLY
     Route: 065
     Dates: end: 2019

REACTIONS (3)
  - Injection site reaction [Recovered/Resolved]
  - Tendonitis [Recovered/Resolved]
  - Tendon rupture [Unknown]

NARRATIVE: CASE EVENT DATE: 2019
